FAERS Safety Report 19357294 (Version 2)
Quarter: 2021Q2

REPORT INFORMATION
  Report Type: Other
  Country: JP (occurrence: JP)
  Receive Date: 20210602
  Receipt Date: 20210604
  Transmission Date: 20210717
  Serious: Yes (Other)
  Sender: FDA-Public Use
  Company Number: JP-ROCHE-2840721

PATIENT
  Age: 7 Decade
  Sex: Male

DRUGS (5)
  1. RISEDRONATE SODIUM. [Concomitant]
     Active Substance: RISEDRONATE SODIUM
     Route: 048
  2. CELLCEPT [Suspect]
     Active Substance: MYCOPHENOLATE MOFETIL\MYCOPHENOLATE MOFETIL HYDROCHLORIDE
     Indication: LIVER DISORDER
     Dosage: 1000 MILLIGRAM
     Route: 065
  3. PREDONINE [Concomitant]
     Active Substance: PREDNISOLONE
     Route: 048
  4. VONOPRAZAN FUMARATE [Concomitant]
     Active Substance: VONOPRAZAN FUMARATE
     Route: 048
  5. ATOVAQUONE. [Concomitant]
     Active Substance: ATOVAQUONE
     Route: 048

REACTIONS (2)
  - Interstitial lung disease [Unknown]
  - Off label use [Unknown]
